FAERS Safety Report 12109889 (Version 2)
Quarter: 2016Q1

REPORT INFORMATION
  Report Type: Spontaneous
  Country: CA (occurrence: CA)
  Receive Date: 20160224
  Receipt Date: 20160309
  Transmission Date: 20160526
  Serious: Yes (Other)
  Sender: FDA-Public Use
  Company Number: PHHY2016CA023338

PATIENT
  Sex: Male

DRUGS (2)
  1. RIVAROXABAN [Concomitant]
     Active Substance: RIVAROXABAN
     Indication: PRODUCT USED FOR UNKNOWN INDICATION
     Route: 065
  2. BISOPROLOL SANDOZ [Suspect]
     Active Substance: BISOPROLOL
     Indication: HYPERTENSION
     Dosage: 5 MG, QD
     Route: 048
     Dates: start: 2012

REACTIONS (6)
  - Peripheral swelling [Unknown]
  - Rash [Unknown]
  - Malaise [Unknown]
  - Arthralgia [Unknown]
  - Thrombosis [Unknown]
  - Urticaria [Unknown]
